APPROVED DRUG PRODUCT: ANEXSIA 5/325
Active Ingredient: ACETAMINOPHEN; HYDROCODONE BITARTRATE
Strength: 325MG;5MG
Dosage Form/Route: TABLET;ORAL
Application: A040409 | Product #001 | TE Code: AA
Applicant: SPECGX LLC
Approved: Oct 20, 2000 | RLD: No | RS: Yes | Type: RX